FAERS Safety Report 8340639-4 (Version None)
Quarter: 2012Q2

REPORT INFORMATION
  Report Type: 
  Country: None (occurrence: None)
  Receive Date: 20120507
  Receipt Date: 20090924
  Transmission Date: 20120825
  Serious: Yes (Other)
  Sender: FDA-Public Use
  Company Number: US-TEVA-2009010777

PATIENT
  Sex: Female

DRUGS (3)
  1. RITUXAN [Concomitant]
     Indication: NON-HODGKIN'S LYMPHOMA
     Dates: start: 20080827, end: 20081201
  2. TREANDA [Suspect]
     Route: 042
  3. TREANDA [Suspect]
     Indication: NON-HODGKIN'S LYMPHOMA
     Route: 042
     Dates: start: 20080827, end: 20081201

REACTIONS (4)
  - MYELODYSPLASTIC SYNDROME [None]
  - PLATELET COUNT DECREASED [None]
  - ANAEMIA [None]
  - NEUTROPHIL COUNT DECREASED [None]
